FAERS Safety Report 7730510-0 (Version None)
Quarter: 2011Q3

REPORT INFORMATION
  Report Type: 
  Country: None (occurrence: None)
  Receive Date: 20110906
  Receipt Date: 20110824
  Transmission Date: 20111222
  Serious: Yes (Other)
  Sender: FDA-Public Use
  Company Number: PHHY2011JP58813

PATIENT
  Sex: Female

DRUGS (2)
  1. NEORAL [Suspect]
     Indication: DYSPHAGIA
  2. NEORAL [Suspect]
     Indication: DERMATOMYOSITIS
     Dosage: UNK UKN, UNK

REACTIONS (2)
  - HYPOAESTHESIA [None]
  - NEUROPATHY PERIPHERAL [None]
